FAERS Safety Report 4492474-5 (Version None)
Quarter: 2004Q4

REPORT INFORMATION
  Report Type: 
  Country: None (occurrence: None)
  Receive Date: 20041103
  Receipt Date: 20041103
  Transmission Date: 20050328
  Serious: Yes (Other)
  Sender: FDA-Public Use
  Company Number: None

PATIENT
  Age: 55 Year
  Sex: Female
  Weight: 73.4827 kg

DRUGS (7)
  1. MIRAPEX [Suspect]
     Indication: PARKINSON'S DISEASE
     Dosage: 1 MG TID ORAL
     Route: 048
     Dates: start: 20040108, end: 20041030
  2. VITAMIN B COMPLEX CAP [Concomitant]
  3. VITAMIN B2 [Concomitant]
  4. MULTIVAITAMIN [Concomitant]
  5. CO Q10 [Concomitant]
  6. VITAMIN E [Concomitant]
  7. CALCIUM [Concomitant]

REACTIONS (1)
  - HYPOTRICHOSIS [None]
